FAERS Safety Report 21473659 (Version 1)
Quarter: 2022Q4

REPORT INFORMATION
  Report Type: Spontaneous
  Country: US (occurrence: US)
  Receive Date: 20221018
  Receipt Date: 20221018
  Transmission Date: 20230113
  Serious: No
  Sender: FDA-Public Use
  Company Number: US-INCYTE CORPORATION-2022IN009719

PATIENT

DRUGS (1)
  1. JAKAFI [Suspect]
     Active Substance: RUXOLITINIB
     Indication: Myelofibrosis
     Dosage: 20 MILLIGRAM, BID
     Route: 048
     Dates: start: 20220913

REACTIONS (10)
  - Pruritus [Unknown]
  - Arthropod bite [Unknown]
  - Fatigue [Unknown]
  - Arthritis [Unknown]
  - Myalgia [Unknown]
  - Hiccups [Unknown]
  - Dyspepsia [Unknown]
  - Laboratory test abnormal [Unknown]
  - Night sweats [Unknown]
  - Muscle strain [Unknown]
